FAERS Safety Report 9337361 (Version 2)
Quarter: 2013Q3

REPORT INFORMATION
  Report Type: Spontaneous
  Country: JP (occurrence: JP)
  Receive Date: 20130607
  Receipt Date: 20130710
  Transmission Date: 20140515
  Serious: Yes (Other)
  Sender: FDA-Public Use
  Company Number: JP-VIIV HEALTHCARE LIMITED-B0896004A

PATIENT
  Sex: Male

DRUGS (4)
  1. EPZICOM [Suspect]
     Indication: PRODUCT USED FOR UNKNOWN INDICATION
     Route: 048
  2. REYATAZ [Suspect]
     Indication: PRODUCT USED FOR UNKNOWN INDICATION
     Route: 048
  3. RITONAVIR [Concomitant]
     Route: 048
  4. ISENTRESS [Concomitant]
     Route: 048

REACTIONS (1)
  - Renal impairment [Recovering/Resolving]
